FAERS Safety Report 13961787 (Version 1)
Quarter: 2017Q3

REPORT INFORMATION
  Report Type: Other
  Country: NO (occurrence: NO)
  Receive Date: 20170912
  Receipt Date: 20170912
  Transmission Date: 20171128
  Serious: Yes (Death, Other)
  Sender: FDA-Public Use
  Company Number: NO-HIKMA PHARMACEUTICALS CO. LTD-2017NO011986

PATIENT

DRUGS (1)
  1. INFLIXIMAB [Suspect]
     Active Substance: INFLIXIMAB
     Indication: PRODUCT USED FOR UNKNOWN INDICATION
     Route: 065

REACTIONS (6)
  - Pulmonary fibrosis [Unknown]
  - Respiratory failure [Unknown]
  - Pneumonia bacterial [Fatal]
  - Bronchitis [Unknown]
  - Pulmonary mass [Unknown]
  - Lung abscess [Unknown]
